FAERS Safety Report 23713326 (Version 1)
Quarter: 2024Q2

REPORT INFORMATION
  Report Type: Other
  Country: ES (occurrence: ES)
  Receive Date: 20240405
  Receipt Date: 20240405
  Transmission Date: 20240716
  Serious: Yes (Hospitalization, Other)
  Sender: FDA-Public Use
  Company Number: ES-GLENMARK PHARMACEUTICALS-2024GMK089715

PATIENT

DRUGS (1)
  1. ABIRATERONE ACETATE [Suspect]
     Active Substance: ABIRATERONE ACETATE
     Indication: Prostate cancer metastatic
     Dosage: 1000 MILLIGRAM, QD (2 COMPRIMIDOS AL D?A)
     Route: 048
     Dates: start: 20230515, end: 20240222

REACTIONS (3)
  - Acute coronary syndrome [Recovered/Resolved]
  - Cardiac failure [Recovered/Resolved]
  - Atrial fibrillation [Recovered/Resolved]

NARRATIVE: CASE EVENT DATE: 20240216
